FAERS Safety Report 7273318-5 (Version None)
Quarter: 2011Q1

REPORT INFORMATION
  Report Type: 
  Country: None (occurrence: None)
  Receive Date: 20110203
  Receipt Date: 20101011
  Transmission Date: 20110831
  Serious: No
  Sender: FDA-Public Use
  Company Number: US-ABBOTT-10P-163-0677971-00

PATIENT
  Sex: Female

DRUGS (2)
  1. SYNTHROID [Suspect]
     Indication: THYROIDECTOMY
     Dates: start: 19890101
  2. SYNTHROID [Suspect]
     Indication: BASEDOW'S DISEASE
     Dosage: LOT NUMBER AND EXPIRATION

REACTIONS (7)
  - FORMICATION [None]
  - DIARRHOEA [None]
  - PRODUCT QUALITY ISSUE [None]
  - HYPERTHYROIDISM [None]
  - ATRIAL FIBRILLATION [None]
  - ALOPECIA [None]
  - INSOMNIA [None]
